FAERS Safety Report 7902021-0 (Version None)
Quarter: 2011Q4

REPORT INFORMATION
  Report Type: 
  Country: None (occurrence: None)
  Receive Date: 20111108
  Receipt Date: 20111028
  Transmission Date: 20120403
  Serious: Yes (Hospitalization, Congenital Anomaly)
  Sender: FDA-Public Use
  Company Number: US-GLAXOSMITHKLINE-A0950522A

PATIENT
  Sex: Female

DRUGS (4)
  1. PAXIL [Suspect]
     Indication: DEPRESSION
     Route: 064
     Dates: start: 19940101
  2. TOBACCO [Concomitant]
     Route: 064
  3. ANAFRANIL [Concomitant]
     Route: 064
  4. TRANXENE [Concomitant]
     Route: 064

REACTIONS (5)
  - PATENT DUCTUS ARTERIOSUS [None]
  - FOETAL EXPOSURE DURING PREGNANCY [None]
  - ATRIAL SEPTAL DEFECT [None]
  - PULMONARY ARTERY STENOSIS CONGENITAL [None]
  - VENTRICULAR SEPTAL DEFECT [None]
